FAERS Safety Report 8745899 (Version 3)
Quarter: 2012Q4

REPORT INFORMATION
  Report Type: 
  Country: US (occurrence: US)
  Receive Date: 20120827
  Receipt Date: 20121017
  Transmission Date: 20130627
  Serious: No
  Sender: FDA-Public Use
  Company Number: US-PFIZER INC-2012204670

PATIENT
  Age: 62 Year
  Sex: Male

DRUGS (2)
  1. INLYTA [Suspect]
     Indication: RENAL CANCER
     Dosage: 7 mg, 2x/day
     Dates: start: 20120811
  2. INLYTA [Suspect]
     Dosage: 4 mg, 2x/day
     Dates: start: 20120811

REACTIONS (15)
  - Throat irritation [Not Recovered/Not Resolved]
  - Glossitis [Not Recovered/Not Resolved]
  - Diarrhoea [Recovered/Resolved]
  - Blood pressure increased [Unknown]
  - Decreased appetite [Not Recovered/Not Resolved]
  - Feeling abnormal [Unknown]
  - Confusional state [Unknown]
  - Memory impairment [Unknown]
  - Fatigue [Unknown]
  - Weight decreased [Unknown]
  - Constipation [Unknown]
  - Dysphonia [Recovering/Resolving]
  - Pain in extremity [Unknown]
  - Hypothyroidism [Unknown]
  - Oral pain [Unknown]
